FAERS Safety Report 6237013-3 (Version None)
Quarter: 2009Q2

REPORT INFORMATION
  Report Type: 
  Country: None (occurrence: None)
  Receive Date: 20090619
  Receipt Date: 20090507
  Transmission Date: 20091009
  Serious: No
  Sender: FDA-Public Use
  Company Number: US-ASTRAZENECA-2009UW07557

PATIENT
  Age: 61 Year
  Sex: Male
  Weight: 65.8 kg

DRUGS (4)
  1. SYMBICORT [Suspect]
     Indication: EMPHYSEMA
     Dosage: 160/4.5 MCG 2 PUFFS
     Route: 055
     Dates: start: 20080901
  2. ALBUTEROL [Concomitant]
     Indication: EMPHYSEMA
     Dosage: 1-2 PUFFS
     Route: 055
     Dates: start: 20080101
  3. LISINOPRIL [Concomitant]
     Indication: BLOOD PRESSURE
     Route: 048
     Dates: start: 20090101
  4. TRAMADOL HCL [Concomitant]
     Indication: PAIN
     Route: 048
     Dates: start: 20090101

REACTIONS (1)
  - DYSPNOEA [None]
